FAERS Safety Report 8776044 (Version 2)
Quarter: 2014Q2

REPORT INFORMATION
  Report Type: Spontaneous
  Country: US (occurrence: US)
  Receive Date: 20120910
  Receipt Date: 20131024
  Transmission Date: 20141212
  Serious: No
  Sender: FDA-Public Use
  Company Number: US-PFIZER INC-2012221529

PATIENT
  Age: 23 Year
  Sex: Female
  Weight: 49.89 kg

DRUGS (6)
  1. LYRICA [Suspect]
     Indication: LUMBAR VERTEBRAL FRACTURE
     Dosage: 100 MG, 2X/DAY
     Dates: start: 201207
  2. MORPHINE SULFATE [Suspect]
     Indication: LUMBAR VERTEBRAL FRACTURE
     Dosage: 15 MG, 2X/DAY
     Dates: start: 201207
  3. NAPROXEN SODIUM [Suspect]
     Indication: LUMBAR VERTEBRAL FRACTURE
     Dosage: 500 MG, AS NEEDED
     Dates: start: 201207
  4. OXYCODONE HYDROCHLORIDE [Suspect]
     Indication: LUMBAR VERTEBRAL FRACTURE
     Dosage: 5MG AFTER EVERY FOUR TO SIX HOURS AS NEEDED
     Dates: start: 201207
  5. PROZAC [Suspect]
     Indication: DEPRESSION
     Dosage: 20 MG, DAILY
     Dates: start: 201207
  6. BACLOFEN [Suspect]
     Indication: LUMBAR VERTEBRAL FRACTURE
     Dosage: 10 MG, 3X/DAY
     Dates: start: 201207

REACTIONS (1)
  - Alopecia [Not Recovered/Not Resolved]
